FAERS Safety Report 8329727-6 (Version None)
Quarter: 2012Q2

REPORT INFORMATION
  Report Type: 
  Country: None (occurrence: None)
  Receive Date: 20120502
  Receipt Date: 20120426
  Transmission Date: 20120825
  Serious: Yes (Other)
  Sender: FDA-Public Use
  Company Number: MY-GLAXOSMITHKLINE-B0799248A

PATIENT
  Sex: Male
  Weight: 69 kg

DRUGS (2)
  1. ANTIHYPERTENSIVES [Concomitant]
  2. PAZOPANIB [Suspect]
     Indication: SMALL CELL CARCINOMA
     Dosage: 800MG PER DAY
     Dates: start: 20120215, end: 20120227

REACTIONS (6)
  - DECREASED APPETITE [None]
  - DIZZINESS [None]
  - HEADACHE [None]
  - PALMAR-PLANTAR ERYTHRODYSAESTHESIA SYNDROME [None]
  - ASTHENIA [None]
  - FEELING HOT [None]
